FAERS Safety Report 12615331 (Version 1)
Quarter: 2016Q3

REPORT INFORMATION
  Report Type: Spontaneous
  Country: NL (occurrence: NL)
  Receive Date: 20160802
  Receipt Date: 20160802
  Transmission Date: 20161109
  Serious: Yes (Other)
  Sender: FDA-Public Use
  Company Number: NL-AKORN PHARMACEUTICALS-2016AKN00467

PATIENT
  Age: 63 Year
  Sex: Female

DRUGS (5)
  1. CLINDAMYCIN [Suspect]
     Active Substance: CLINDAMYCIN\CLINDAMYCIN PHOSPHATE
     Dosage: 300 MG, 4X/DAY
     Route: 065
  2. AMOXICILLIN/CLAVULANIC ACID [Suspect]
     Active Substance: AMOXICILLIN\CLAVULANIC ACID
     Dosage: 500/125 MG, 4X/DAY
     Route: 065
  3. AMOXICILLIN/CLAVULANIC ACID [Suspect]
     Active Substance: AMOXICILLIN\CLAVULANIC ACID
     Dosage: 1,000/200 MG, 4X/DAY
     Route: 042
  4. MORPHINE [Suspect]
     Active Substance: MORPHINE
     Indication: AMPUTATION STUMP PAIN
     Dosage: 3.5 MG, 1X/DAY
     Route: 037
     Dates: start: 1999
  5. MORPHINE [Suspect]
     Active Substance: MORPHINE
     Dosage: 0.5 MG, 1X/DAY
     Route: 037

REACTIONS (4)
  - Seizure [Recovered/Resolved]
  - Hemiparesis [Recovered/Resolved]
  - Posterior reversible encephalopathy syndrome [Recovered/Resolved]
  - Blindness cortical [Recovered/Resolved]
